FAERS Safety Report 7588127-7 (Version None)
Quarter: 2011Q2

REPORT INFORMATION
  Report Type: 
  Country: None (occurrence: None)
  Receive Date: 20110627
  Receipt Date: 20110617
  Transmission Date: 20111010
  Serious: Yes (Hospitalization, Other)
  Sender: FDA-Public Use
  Company Number: 2010AC000379

PATIENT
  Sex: Female

DRUGS (8)
  1. VALSARTAN [Concomitant]
  2. LANSOPRAZOLE [Concomitant]
  3. JANUVIA [Concomitant]
  4. NITROGLYCERIN [Concomitant]
  5. FUROSEMIDE [Concomitant]
  6. METFORMIN HCL [Concomitant]
  7. TRAMADOL HCL [Concomitant]
  8. DIGOXIN [Suspect]
     Indication: ARRHYTHMIA
     Dosage: 0.25 MG; QD; PO
     Route: 048
     Dates: start: 20040602, end: 20090501

REACTIONS (9)
  - CARDIAC DISORDER [None]
  - NAUSEA [None]
  - CARDIAC FAILURE [None]
  - ANXIETY [None]
  - PAIN [None]
  - RENAL FAILURE [None]
  - MULTIPLE INJURIES [None]
  - ECONOMIC PROBLEM [None]
  - VOMITING [None]
